FAERS Safety Report 19165848 (Version 2)
Quarter: 2021Q2

REPORT INFORMATION
  Report Type: Report from Study
  Country: None (occurrence: BR)
  Receive Date: 20210422
  Receipt Date: 20210521
  Transmission Date: 20210717
  Serious: Yes (Other)
  Sender: FDA-Public Use
  Company Number: BR-ABBVIE-21K-020-3864714-00

PATIENT
  Age: 35 Year
  Sex: Male
  Weight: 80 kg

DRUGS (4)
  1. HUMIRA [Suspect]
     Active Substance: ADALIMUMAB
     Route: 058
     Dates: end: 20210401
  2. HUMIRA [Suspect]
     Active Substance: ADALIMUMAB
     Dosage: LOADING DOSE
     Route: 058
  3. HUMIRA [Suspect]
     Active Substance: ADALIMUMAB
     Indication: CROHN^S DISEASE
     Dosage: LOADING DOSE  ? WEEK 00
     Route: 058
     Dates: start: 20170101, end: 20170101
  4. AZATHIOPRINE. [Concomitant]
     Active Substance: AZATHIOPRINE
     Indication: STENOSIS
     Dosage: UNSPECIFIED DOSE
     Dates: start: 1998

REACTIONS (7)
  - Stenosis [Recovered/Resolved]
  - Gastrointestinal stoma complication [Recovered/Resolved]
  - Intestinal prolapse [Recovered/Resolved]
  - Malaise [Unknown]
  - Anal stenosis [Not Recovered/Not Resolved]
  - Intestinal stenosis [Unknown]
  - Malaise [Recovered/Resolved]

NARRATIVE: CASE EVENT DATE: 2018
